FAERS Safety Report 9291157 (Version 1)
Quarter: 2013Q2

REPORT INFORMATION
  Report Type: Report from Study
  Country: AR (occurrence: AR)
  Receive Date: 20130515
  Receipt Date: 20130515
  Transmission Date: 20140414
  Serious: Yes (Other)
  Sender: FDA-Public Use
  Company Number: PHHY2013AR048319

PATIENT
  Sex: Female

DRUGS (1)
  1. DIOVAN [Suspect]
     Indication: BLOOD PRESSURE ABNORMAL
     Dosage: 80 MG, (1 OR 2 TIMES DAILY)
     Route: 048
     Dates: start: 201105

REACTIONS (2)
  - Granuloma annulare [Not Recovered/Not Resolved]
  - Hypertension [Not Recovered/Not Resolved]
